FAERS Safety Report 5602592-3 (Version None)
Quarter: 2008Q1

REPORT INFORMATION
  Report Type: 
  Country: None (occurrence: None)
  Receive Date: 20080125
  Receipt Date: 20080115
  Transmission Date: 20080703
  Serious: Yes (Hospitalization)
  Sender: FDA-Public Use
  Company Number: US-ASTRAZENECA-2006UW10754

PATIENT
  Age: 615 Month
  Sex: Male
  Weight: 93.6 kg

DRUGS (18)
  1. SEROQUEL [Suspect]
     Indication: SLEEP DISORDER
     Route: 048
     Dates: start: 20050424, end: 20050429
  2. SEROQUEL [Suspect]
     Indication: MENTAL DISORDER
     Route: 048
     Dates: start: 20050424, end: 20050429
  3. SEROQUEL [Suspect]
     Route: 048
     Dates: start: 20050501
  4. SEROQUEL [Suspect]
     Route: 048
     Dates: start: 20050501
  5. SEROQUEL [Suspect]
     Route: 048
     Dates: start: 20050707, end: 20051026
  6. SEROQUEL [Suspect]
     Route: 048
     Dates: start: 20050707, end: 20051026
  7. SEROQUEL [Suspect]
     Route: 048
     Dates: end: 20060101
  8. SEROQUEL [Suspect]
     Route: 048
     Dates: end: 20060101
  9. LAMOTRIGINE [Concomitant]
     Route: 048
  10. ACETAMINOPHEN [Concomitant]
  11. BENZTROPINE MESYLATE [Concomitant]
     Dosage: PRN
  12. HALDOL [Concomitant]
     Dosage: PRN
     Route: 030
  13. HALDOL [Concomitant]
     Dosage: PRN
     Route: 048
  14. LORAZEPAM [Concomitant]
     Dosage: PRN
     Route: 030
  15. LORAZEPAM [Concomitant]
     Dosage: PRN
     Route: 048
  16. GLIPIZIDE [Concomitant]
     Indication: DIABETES MELLITUS
     Route: 048
  17. METFORMIN HCL [Concomitant]
     Indication: DIABETES MELLITUS
     Route: 048
  18. NAPROXEN [Concomitant]
     Dosage: PRN

REACTIONS (6)
  - ANGER [None]
  - ANXIETY [None]
  - DIABETES MELLITUS [None]
  - FLIGHT OF IDEAS [None]
  - SUICIDAL IDEATION [None]
  - THINKING ABNORMAL [None]
